FAERS Safety Report 10302590 (Version 3)
Quarter: 2014Q4

REPORT INFORMATION
  Report Type: Spontaneous
  Country: US (occurrence: None)
  Receive Date: 20140709
  Receipt Date: 20141103
  Transmission Date: 20150528
  Serious: Yes (Life-Threatening, Hospitalization)
  Sender: FDA-Public Use
  Company Number: 1713747-2014-99996

PATIENT
  Age: 64 Year
  Sex: Female
  Weight: 121.5 kg

DRUGS (6)
  1. COMBISET [Concomitant]
  2. 0.9% SODIUM CHLORIDE INJECTION, 1L [Suspect]
     Active Substance: SODIUM CHLORIDE
     Indication: CHRONIC KIDNEY DISEASE
     Dosage: HEMODIALYSIS
     Dates: start: 20140617
  3. GRANUFLO [Concomitant]
     Active Substance: ACETIC ACID\SODIUM ACETATE
  4. DIALYZER [Concomitant]
  5. 2008K HEMODIALYSIS SYSTEM [Concomitant]
     Active Substance: DEVICE
  6. NATURALYTE [Concomitant]
     Active Substance: ACETIC ACID\SODIUM ACETATE

REACTIONS (3)
  - Unresponsive to stimuli [None]
  - Cardio-respiratory arrest [None]
  - Dyspnoea [None]

NARRATIVE: CASE EVENT DATE: 20140617
